FAERS Safety Report 23931070 (Version 2)
Quarter: 2024Q2

REPORT INFORMATION
  Report Type: Other
  Country: AR (occurrence: AR)
  Receive Date: 20240603
  Receipt Date: 20240610
  Transmission Date: 20240716
  Serious: Yes (Other)
  Sender: FDA-Public Use
  Company Number: AR-002147023-NVSC2022AR025434

PATIENT
  Age: 65 Year
  Sex: Male

DRUGS (5)
  1. XOLAIR [Suspect]
     Active Substance: OMALIZUMAB
     Indication: Asthma
     Dosage: 600 MG, BIW (ONCE EVERY TWO WEEKS)
     Route: 058
  2. XOLAIR [Suspect]
     Active Substance: OMALIZUMAB
     Dosage: 1200 MG, QMO (ONCE MONTHLY)
     Route: 058
     Dates: start: 20180823
  3. XOLAIR [Suspect]
     Active Substance: OMALIZUMAB
     Route: 065
     Dates: start: 2018
  4. VENTOLIN [Concomitant]
     Active Substance: ALBUTEROL SULFATE
     Indication: Bronchial obstruction
     Dosage: UNK
  5. CORTISONE [Concomitant]
     Active Substance: CORTISONE
     Indication: Bronchial obstruction
     Dosage: UNK

REACTIONS (6)
  - Bronchopulmonary aspergillosis allergic [Recovered/Resolved]
  - Blood cholesterol increased [Unknown]
  - Hypertension [Unknown]
  - Blood immunoglobulin E increased [Unknown]
  - Incorrect dose administered [Unknown]
  - Diabetes mellitus [Unknown]
